FAERS Safety Report 22021253 (Version 1)
Quarter: 2023Q1

REPORT INFORMATION
  Report Type: Spontaneous
  Country: US (occurrence: US)
  Receive Date: 20230222
  Receipt Date: 20230222
  Transmission Date: 20230418
  Serious: No
  Sender: FDA-Public Use
  Company Number: US-SA-SAC20230221001232

PATIENT
  Sex: Female

DRUGS (4)
  1. DUPIXENT [Suspect]
     Active Substance: DUPILUMAB
     Indication: Dermatitis atopic
     Dosage: 300 MG, QOW
     Route: 058
     Dates: start: 20201113
  2. IBUPROFEN [Concomitant]
     Active Substance: IBUPROFEN
     Dosage: UNK
  3. PHENTERMINE [Concomitant]
     Active Substance: PHENTERMINE
  4. CYCLOBENZAPRINE [Concomitant]
     Active Substance: CYCLOBENZAPRINE
     Dosage: UNK

REACTIONS (1)
  - Dry skin [Not Recovered/Not Resolved]
